FAERS Safety Report 15603651 (Version 1)
Quarter: 2018Q4

REPORT INFORMATION
  Report Type: Spontaneous
  Country: IT (occurrence: IT)
  Receive Date: 20181109
  Receipt Date: 20181109
  Transmission Date: 20190205
  Serious: Yes (Other)
  Sender: FDA-Public Use
  Company Number: IT-MYLANLABS-2018M1084615

PATIENT
  Age: 81 Year
  Sex: Male

DRUGS (15)
  1. AMIODAR [Concomitant]
     Active Substance: AMIODARONE
     Indication: HYPERTENSION
     Dosage: 200 ?G, QD
     Dates: start: 20150101
  2. PROCAPTAN [Concomitant]
     Active Substance: PERINDOPRIL ERBUMINE
     Dosage: 125 ?G, UNK
  3. ZOLOFT [Concomitant]
     Active Substance: SERTRALINE HYDROCHLORIDE
     Indication: ANTIDEPRESSANT THERAPY
     Dosage: 50 MG, QD
     Route: 048
     Dates: start: 20130101
  4. ZOLOFT [Concomitant]
     Active Substance: SERTRALINE HYDROCHLORIDE
     Dosage: 50 MG, UNK
     Route: 048
  5. PROCAPTAN [Concomitant]
     Active Substance: PERINDOPRIL ERBUMINE
     Indication: HYPERTENSION
     Dosage: 125 ?G, QD
     Dates: start: 20170901
  6. SEQUACOR [Concomitant]
     Active Substance: BISOPROLOL
     Indication: ARRHYTHMIA
     Dosage: 25 ?G, QD
     Dates: start: 20170701
  7. PANTECTA [Concomitant]
     Active Substance: PANTOPRAZOLE SODIUM
     Dosage: 40 MG, UNK
     Route: 048
  8. LASIX  FIALE  /00032601/ [Concomitant]
     Indication: PRODUCT USED FOR UNKNOWN INDICATION
     Dosage: 25 MG, QD
     Route: 048
     Dates: start: 20130101
  9. ALPRAZOLAM. [Concomitant]
     Active Substance: ALPRAZOLAM
     Indication: PRODUCT USED FOR UNKNOWN INDICATION
     Dosage: 25 ?G, QD
     Route: 048
     Dates: start: 20150101
  10. SEQUACOR [Concomitant]
     Active Substance: BISOPROLOL
     Dosage: 25 ?G, UNK
     Route: 048
  11. LASIX  FIALE  /00032601/ [Concomitant]
     Dosage: 25 MG, UNK
     Route: 048
  12. ALPRAZOLAM. [Concomitant]
     Active Substance: ALPRAZOLAM
     Dosage: 25 ?G, UNK
     Route: 048
  13. PANTECTA [Concomitant]
     Active Substance: PANTOPRAZOLE SODIUM
     Indication: GASTRIC DISORDER
     Dosage: 40 MG, QD
     Route: 048
     Dates: start: 20160101
  14. CLOPIDOGREL [Suspect]
     Active Substance: CLOPIDOGREL BISULFATE
     Indication: THROMBOSIS PROPHYLAXIS
     Dosage: 75 MG, QD
     Route: 048
     Dates: start: 20180521, end: 20180605
  15. AMIODAR [Concomitant]
     Active Substance: AMIODARONE
     Dosage: 200 ?G, UNK
     Route: 048

REACTIONS (2)
  - Dermatitis [Not Recovered/Not Resolved]
  - Pruritus [Not Recovered/Not Resolved]

NARRATIVE: CASE EVENT DATE: 20180522
